FAERS Safety Report 7721966-8 (Version None)
Quarter: 2011Q3

REPORT INFORMATION
  Report Type: 
  Country: None (occurrence: None)
  Receive Date: 20110831
  Receipt Date: 20110829
  Transmission Date: 20111222
  Serious: Yes (Hospitalization, Other)
  Sender: FDA-Public Use
  Company Number: US-PFIZER INC-2011200584

PATIENT
  Sex: Male
  Weight: 95.24 kg

DRUGS (18)
  1. XANAX [Suspect]
     Dosage: UNK
     Route: 048
     Dates: end: 20110801
  2. VITAMIN B-12 [Concomitant]
     Dosage: UNK
  3. ZANTAC [Concomitant]
     Dosage: 130 MG, 2X/DAY
  4. ROZEREM [Concomitant]
     Dosage: 8 MG, DAILY AT BED TIME
  5. EFFEXOR [Concomitant]
     Dosage: 75 MG, DAILY
  6. TENORMIN [Concomitant]
     Dosage: 50 MG, DAILY
  7. XANAX [Suspect]
     Indication: BIPOLAR DISORDER
     Dosage: 1 MG, DAILY
     Route: 048
     Dates: start: 20050101
  8. LITHIUM CHLORIDE [Concomitant]
     Dosage: 300MG ONE TABLET IN THE MORNING AND TWO TABLET AT BED TIME
  9. ALTACE [Concomitant]
     Dosage: 5 MG, DAILY
  10. NIASPAN [Concomitant]
     Dosage: 500 MG, DAILY
  11. ABILIFY [Concomitant]
     Dosage: 2 MG, DAILY
  12. XANAX [Suspect]
     Dosage: 1 MG, 4X/DAY
     Route: 048
     Dates: start: 20110801
  13. FENOFIBRATE [Concomitant]
     Dosage: 160 MG, DAILY
  14. POTASSIUM CHLORIDE [Concomitant]
     Dosage: 20 MG, UNK
  15. AMBIEN [Concomitant]
     Dosage: 10 MG, DAILY AT BED TIME
  16. MORPHINE [Concomitant]
     Indication: SCIATICA
     Dosage: UNK
  17. FISH OIL [Concomitant]
     Dosage: 1000 MG, DAILY
  18. SIMVASTATIN [Concomitant]
     Dosage: 40 MG, DAILY

REACTIONS (5)
  - FRUSTRATION [None]
  - DYSPHEMIA [None]
  - VOCAL CORD DISORDER [None]
  - HEADACHE [None]
  - DRUG DETOXIFICATION [None]
